FAERS Safety Report 5284133-6 (Version None)
Quarter: 2007Q1

REPORT INFORMATION
  Report Type: 
  Country: None (occurrence: None)
  Receive Date: 20070328
  Receipt Date: 20070319
  Transmission Date: 20070707
  Serious: Yes (Hospitalization)
  Sender: FDA-Public Use
  Company Number: CLOF-10457

PATIENT
  Age: 40 Year
  Sex: Male

DRUGS (15)
  1. CLOFARABINE [Suspect]
     Indication: ACUTE MYELOID LEUKAEMIA
  2. CLOFARABINE [Suspect]
     Indication: MYELODYSPLASTIC SYNDROME
  3. ACETAMINOPHEN [Concomitant]
  4. ALLOPURINOL [Concomitant]
  5. HYDROCORTISONE [Concomitant]
  6. VORICONAZOLE [Concomitant]
  7. CEFEPIME [Concomitant]
  8. VANCOMYCIN [Concomitant]
  9. VALTREX [Concomitant]
  10. AMBISOME [Concomitant]
  11. ZOFRAN [Concomitant]
  12. ATIVAN [Concomitant]
  13. LEXAPRO [Concomitant]
  14. DAPSONE [Concomitant]
  15. CIPRO [Concomitant]

REACTIONS (13)
  - ARTHRALGIA [None]
  - BACTERIAL INFECTION [None]
  - BLOOD CULTURE POSITIVE [None]
  - BUNDLE BRANCH BLOCK RIGHT [None]
  - CHILLS [None]
  - ELECTROCARDIOGRAM T WAVE INVERSION [None]
  - FATIGUE [None]
  - FEBRILE NEUTROPENIA [None]
  - INFLUENZA LIKE ILLNESS [None]
  - LETHARGY [None]
  - PERICARDIAL EFFUSION [None]
  - SINUSITIS [None]
  - TACHYCARDIA [None]
